FAERS Safety Report 8840225 (Version 2)
Quarter: 2012Q4

REPORT INFORMATION
  Report Type: 
  Country: US (occurrence: US)
  Receive Date: 20121015
  Receipt Date: 20121025
  Transmission Date: 20130627
  Serious: Yes (Hospitalization)
  Sender: FDA-Public Use
  Company Number: US-UCBSA-068568

PATIENT
  Age: 47 Year
  Sex: Male

DRUGS (15)
  1. CIMZIA [Suspect]
     Indication: CROHN^S DISEASE
     Route: 058
  2. AMLODIPINE [Concomitant]
  3. HYDROCODONE [Concomitant]
     Dosage: 7.5/500
  4. HCTZ [Concomitant]
  5. LISINOPRIL [Concomitant]
  6. LOPERAMIDE [Concomitant]
  7. PROCHLORPERAZINE [Concomitant]
  8. PROMETHAZINE [Concomitant]
  9. SEROQUEL [Concomitant]
     Dosage: bed time
  10. TIZANIDINE [Concomitant]
     Dosage: 2 mg
  11. TRAZODONE [Concomitant]
     Dosage: 150 mg
  12. DEPAKOTE [Concomitant]
     Dosage: 250
  13. IMURAN [Concomitant]
     Dosage: 125
  14. CLONAZEPAM [Concomitant]
  15. MULTIVITAMIN [Concomitant]

REACTIONS (1)
  - Small intestinal obstruction [Recovered/Resolved]
